FAERS Safety Report 8031015-2 (Version None)
Quarter: 2012Q1

REPORT INFORMATION
  Report Type: 
  Country: None (occurrence: None)
  Receive Date: 20120109
  Receipt Date: 20120105
  Transmission Date: 20120608
  Serious: Yes (Other)
  Sender: FDA-Public Use
  Company Number: PHHY2011UY10403

PATIENT
  Sex: Female

DRUGS (4)
  1. CLOZAPINE [Suspect]
     Indication: SCHIZOPHRENIA, DISORGANISED TYPE
     Dosage: 25 MG DAILY
     Dates: start: 20091119
  2. CLOZAPINE [Suspect]
     Dosage: 350 MG DAILY
  3. FLUOXETINE [Concomitant]
  4. ALPRAZOLAM [Concomitant]

REACTIONS (2)
  - TOOTH DECALCIFICATION [None]
  - SALIVARY HYPERSECRETION [None]
